FAERS Safety Report 20290331 (Version 11)
Quarter: 2025Q1

REPORT INFORMATION
  Report Type: Report from Study
  Country: DE (occurrence: DE)
  Receive Date: 20220104
  Receipt Date: 20250218
  Transmission Date: 20250408
  Serious: Yes (Death)
  Sender: ROCHE
  Company Number: DE-ROCHE-2987662

PATIENT
  Age: 62 Year
  Sex: Male
  Weight: 87.0 kg

DRUGS (9)
  1. OCRELIZUMAB [Suspect]
     Active Substance: OCRELIZUMAB
     Indication: Relapsing multiple sclerosis
     Route: 040
     Dates: start: 20200605, end: 20200619
  2. OCRELIZUMAB [Suspect]
     Active Substance: OCRELIZUMAB
     Dosage: MOST RECENT DOSE: 15/NOV/2021
     Route: 040
     Dates: start: 20210129, end: 20211115
  3. DALFAMPRIDINE [Concomitant]
     Active Substance: DALFAMPRIDINE
     Route: 048
     Dates: start: 20161208
  4. TAMSULOSIN [Concomitant]
     Active Substance: TAMSULOSIN
     Indication: Micturition disorder
     Route: 048
  5. SARS-COV-2 VACCINE [Concomitant]
     Route: 058
     Dates: start: 20210714, end: 20210714
  6. SARS-COV-2 VACCINE [Concomitant]
     Route: 058
     Dates: start: 20210615, end: 20210615
  7. VITAMIN D3 [Concomitant]
     Active Substance: CHOLECALCIFEROL
     Indication: Prophylaxis
     Route: 048
     Dates: start: 20170905
  8. RAMIPRIL [Concomitant]
     Active Substance: RAMIPRIL
     Indication: Hypertension
     Route: 048
  9. TORSEMIDE [Concomitant]
     Active Substance: TORSEMIDE
     Indication: Hypertension
     Route: 048

REACTIONS (2)
  - COVID-19 [Fatal]
  - Sudden death [Fatal]

NARRATIVE: CASE EVENT DATE: 20211220
